FAERS Safety Report 6290552-1 (Version None)
Quarter: 2009Q3

REPORT INFORMATION
  Report Type: 
  Country: None (occurrence: None)
  Receive Date: 20090730
  Receipt Date: 20090717
  Transmission Date: 20100115
  Serious: Yes (Other)
  Sender: FDA-Public Use
  Company Number: CH-ROCHE-644683

PATIENT
  Sex: Male
  Weight: 2.6 kg

DRUGS (7)
  1. ROACCUTAN [Suspect]
     Indication: DRUG USE FOR UNKNOWN INDICATION
     Route: 064
     Dates: end: 20080130
  2. KALETRA [Suspect]
     Indication: HIV INFECTION
     Route: 064
     Dates: start: 20080603, end: 20081024
  3. COMBIVIR [Suspect]
     Indication: HIV INFECTION
     Route: 064
     Dates: start: 20080603, end: 20081024
  4. CELESTONE [Suspect]
     Indication: DRUG USE FOR UNKNOWN INDICATION
     Route: 064
     Dates: start: 20080901, end: 20080901
  5. ZITHROMAX [Suspect]
     Route: 064
     Dates: start: 20080901, end: 20080901
  6. AUGMENTIN [Suspect]
     Route: 064
     Dates: start: 20080901, end: 20080901
  7. MAGNESIOCARD [Concomitant]
     Route: 064

REACTIONS (6)
  - ANAEMIA NEONATAL [None]
  - DRUG EXPOSURE BEFORE PREGNANCY [None]
  - DRUG EXPOSURE DURING PREGNANCY [None]
  - METRORRHAGIA [None]
  - NORMAL NEWBORN [None]
  - PREMATURE BABY [None]
